FAERS Safety Report 23287130 (Version 1)
Quarter: 2023Q4

REPORT INFORMATION
  Report Type: Report from Study
  Country: EG (occurrence: EG)
  Receive Date: 20231212
  Receipt Date: 20231212
  Transmission Date: 20240110
  Serious: Yes (Other)
  Sender: FDA-Public Use
  Company Number: EG-Merck Healthcare KGaA-2023492806

PATIENT
  Age: 36 Year
  Sex: Female

DRUGS (1)
  1. REBIF [Suspect]
     Active Substance: INTERFERON BETA-1A
     Indication: Product used for unknown indication

REACTIONS (2)
  - Optic neuritis [Unknown]
  - Burning sensation [Unknown]

NARRATIVE: CASE EVENT DATE: 20231005
